FAERS Safety Report 11803611 (Version 1)
Quarter: 2015Q4

REPORT INFORMATION
  Report Type: Spontaneous
  Country: DE (occurrence: DE)
  Receive Date: 20151204
  Receipt Date: 20151204
  Transmission Date: 20160305
  Serious: Yes (Hospitalization)
  Sender: FDA-Public Use
  Company Number: DE-009507513-1512DEU000855

PATIENT
  Age: 80 Year
  Sex: Female

DRUGS (5)
  1. RAMIPRIL. [Concomitant]
     Active Substance: RAMIPRIL
     Indication: HYPERTENSION
     Dosage: UNK
  2. EBRANTIL [Concomitant]
     Active Substance: URAPIDIL
     Indication: HYPERTENSION
     Dosage: UNK
  3. BERLINSULIN H BASAL [Suspect]
     Active Substance: INSULIN HUMAN
     Indication: DIABETES MELLITUS
     Dosage: DAILY DOSE 6IU
     Dates: start: 2005
  4. JANUVIA [Suspect]
     Active Substance: SITAGLIPTIN PHOSPHATE
     Indication: DIABETES MELLITUS
     Dosage: UNK
     Route: 048
     Dates: end: 201510
  5. PLAVIX [Concomitant]
     Active Substance: CLOPIDOGREL BISULFATE
     Indication: CARDIAC PACEMAKER INSERTION
     Dosage: UNK
     Dates: start: 2001

REACTIONS (1)
  - Diabetes mellitus inadequate control [Recovering/Resolving]

NARRATIVE: CASE EVENT DATE: 201510
